FAERS Safety Report 8001981-X (Version None)
Quarter: 2011Q4

REPORT INFORMATION
  Report Type: 
  Country: None (occurrence: None)
  Receive Date: 20111222
  Receipt Date: 20111220
  Transmission Date: 20120403
  Serious: Yes (Hospitalization)
  Sender: FDA-Public Use
  Company Number: BR-ROCHE-1023875

PATIENT
  Sex: Female
  Weight: 70 kg

DRUGS (8)
  1. METHOTREXATE [Concomitant]
  2. ACTEMRA [Suspect]
     Indication: RHEUMATOID ARTHRITIS
     Dosage: SECOND INFUSION:08/AUG/2010
     Dates: start: 20100708, end: 20110901
  3. AMITRIPTYLINE HCL [Concomitant]
  4. ACETAMINOPHEN [Concomitant]
     Indication: PAIN
  5. METICORTEN [Concomitant]
  6. ISONIAZID [Concomitant]
  7. FOLIC ACID [Concomitant]
  8. OMEPRAZOLE [Concomitant]

REACTIONS (2)
  - RESPIRATORY DISORDER [None]
  - INFLUENZA [None]
